FAERS Safety Report 4967173-3 (Version None)
Quarter: 2006Q2

REPORT INFORMATION
  Report Type: 
  Country: None (occurrence: None)
  Receive Date: 20060410
  Receipt Date: 20060330
  Transmission Date: 20061013
  Serious: Yes (Hospitalization)
  Sender: FDA-Public Use
  Company Number: 2006CG00613

PATIENT
  Age: 64 Year
  Sex: Male

DRUGS (1)
  1. CRESTOR [Suspect]
     Route: 048
     Dates: end: 20051215

REACTIONS (3)
  - CUTANEOUS VASCULITIS [None]
  - EOSINOPHILIA [None]
  - PERIPHERAL SENSORIMOTOR NEUROPATHY [None]
